FAERS Safety Report 4695606-9 (Version None)
Quarter: 2005Q2

REPORT INFORMATION
  Report Type: 
  Country: None (occurrence: None)
  Receive Date: 20050524
  Receipt Date: 20050215
  Transmission Date: 20051028
  Serious: Yes (Hospitalization)
  Sender: FDA-Public Use
  Company Number: US-BOEHRINGER INGELHEIM PHARMMACEUTICALS, INC.-2005-BP-02346BP

PATIENT
  Age: 51 Year
  Sex: Male

DRUGS (11)
  1. COMBIVENT [Suspect]
     Indication: ASTHMA
     Route: 055
     Dates: start: 19990101
  2. SPIRIVA [Suspect]
     Indication: ASTHMA
     Route: 055
     Dates: start: 20040815, end: 20050125
  3. SUDAFED 12 HOUR [Suspect]
  4. ADVAIR [Concomitant]
     Dosage: 500/100MG
  5. NASACORT [Concomitant]
  6. XOPENEX [Concomitant]
     Indication: DYSPNOEA
  7. UNIPHYL [Concomitant]
  8. ALLEGRA [Concomitant]
  9. SINGULAIR [Concomitant]
  10. SINGULAIR [Concomitant]
  11. SINGULAIR [Concomitant]

REACTIONS (6)
  - ABDOMINAL PAIN UPPER [None]
  - BENIGN PROSTATIC HYPERPLASIA [None]
  - BODY TEMPERATURE INCREASED [None]
  - CONSTIPATION [None]
  - RASH [None]
  - URINARY RETENTION [None]
